FAERS Safety Report 26111047 (Version 1)
Quarter: 2025Q4

REPORT INFORMATION
  Report Type: Spontaneous
  Country: EU (occurrence: EU)
  Receive Date: 20251202
  Receipt Date: 20251202
  Transmission Date: 20260118
  Serious: Yes (Other)
  Sender: ACCORD
  Company Number: EU-MLMSERVICE-20251114-PI713344-00232-1

PATIENT
  Age: 10 Year
  Sex: Male

DRUGS (6)
  1. MYCOPHENOLATE MOFETIL [Suspect]
     Active Substance: MYCOPHENOLATE MOFETIL
     Indication: STING-associated vasculopathy with onset in infancy
  2. RUXOLITINIB [Suspect]
     Active Substance: RUXOLITINIB
     Indication: STING-associated vasculopathy with onset in infancy
  3. RUXOLITINIB [Suspect]
     Active Substance: RUXOLITINIB
     Indication: Polyarthritis
  4. RUXOLITINIB [Suspect]
     Active Substance: RUXOLITINIB
     Indication: Pneumonia
  5. MYCOPHENOLATE MOFETIL [Suspect]
     Active Substance: MYCOPHENOLATE MOFETIL
     Indication: Polyarthritis
  6. MYCOPHENOLATE MOFETIL [Suspect]
     Active Substance: MYCOPHENOLATE MOFETIL
     Indication: Pneumonia

REACTIONS (3)
  - Atypical mycobacterial lymphadenitis [Unknown]
  - Atypical mycobacterial pneumonia [Unknown]
  - Off label use [Unknown]
